FAERS Safety Report 5241059-1 (Version None)
Quarter: 2007Q1

REPORT INFORMATION
  Report Type: 
  Country: None (occurrence: None)
  Receive Date: 20070214
  Receipt Date: 20070214
  Transmission Date: 20070707
  Serious: Yes (Hospitalization)
  Sender: FDA-Public Use
  Company Number: None

PATIENT
  Age: 52 Year
  Sex: Male
  Weight: 69.9 kg

DRUGS (3)
  1. CLARITHROMYCIN [Suspect]
  2. PHENYTOIN [Suspect]
  3. WARFARIN SODIUM [Suspect]
     Dosage: (ADJUSTED DOWN PRIOR TO STAR OF CLARITHROMYCIN)

REACTIONS (4)
  - ASTHENIA [None]
  - DIZZINESS [None]
  - DRUG LEVEL INCREASED [None]
  - INTERNATIONAL NORMALISED RATIO INCREASED [None]
